FAERS Safety Report 13353297 (Version 2)
Quarter: 2017Q2

REPORT INFORMATION
  Report Type: Spontaneous
  Country: US (occurrence: US)
  Receive Date: 20170321
  Receipt Date: 20170420
  Transmission Date: 20170830
  Serious: Yes (Hospitalization, Other)
  Sender: FDA-Public Use
  Company Number: US-009507513-1703USA007699

PATIENT
  Age: 52 Year
  Sex: Female

DRUGS (1)
  1. KEYTRUDA [Suspect]
     Active Substance: PEMBROLIZUMAB
     Indication: METASTATIC MALIGNANT MELANOMA
     Dosage: 2 MG/KG, Q3W, RECEIVED TOTALLY 5 CYCLES
     Route: 042

REACTIONS (5)
  - Autoimmune colitis [Recovering/Resolving]
  - Therapeutic response delayed [Unknown]
  - Vitiligo [Recovering/Resolving]
  - Drug effect incomplete [Unknown]
  - Tumour pseudoprogression [Recovering/Resolving]
